FAERS Safety Report 5366257-8 (Version None)
Quarter: 2007Q2

REPORT INFORMATION
  Report Type: 
  Country: None (occurrence: None)
  Receive Date: 20070619
  Receipt Date: 20070619
  Transmission Date: 20071010
  Serious: Yes (Other)
  Sender: FDA-Public Use
  Company Number: None

PATIENT
  Sex: Male
  Weight: 93.441 kg

DRUGS (2)
  1. VELCADE [Suspect]
     Indication: MULTIPLE MYELOMA
     Dosage: 2.0 MG Q72 HOURS IVP
     Route: 042
     Dates: start: 20070226
  2. VELCADE [Suspect]
     Indication: MULTIPLE MYELOMA
     Dosage: 2.0 MG Q72 HOURS IVP
     Route: 042
     Dates: start: 20070308

REACTIONS (4)
  - BACK PAIN [None]
  - INSOMNIA [None]
  - MUSCLE SPASMS [None]
  - MYALGIA [None]
